FAERS Safety Report 24165715 (Version 2)
Quarter: 2025Q3

REPORT INFORMATION
  Report Type: Spontaneous
  Country: US (occurrence: US)
  Receive Date: 20240802
  Receipt Date: 20250804
  Transmission Date: 20251021
  Serious: No
  Sender: ACCORD
  Company Number: US-Accord-417693

PATIENT
  Age: 49 Year
  Sex: Female

DRUGS (5)
  1. DOCETAXEL [Suspect]
     Active Substance: DOCETAXEL
     Indication: Breast cancer
     Dosage: DOCETAXEL INJECTION CONCENTRATE, NUMBER OF CYCLES: 4
     Dates: start: 20220401, end: 20220401
  2. ADRIAMYCIN [Suspect]
     Active Substance: DOXORUBICIN HYDROCHLORIDE
     Indication: Breast cancer
  3. DOCETAXEL [Suspect]
     Active Substance: DOCETAXEL
     Indication: Breast cancer
     Dosage: DOCETAXEL INJECTION CONCENTRATE, NUMBER OF CYCLES: 4
     Dates: start: 20220422, end: 20220422
  4. DOCETAXEL [Suspect]
     Active Substance: DOCETAXEL
     Indication: Breast cancer
     Dosage: DOCETAXEL INJECTION CONCENTRATE, NUMBER OF CYCLES: 4
     Dates: start: 20220513, end: 20220513
  5. DOCETAXEL [Suspect]
     Active Substance: DOCETAXEL
     Indication: Breast cancer
     Dosage: DOCETAXEL INJECTION CONCENTRATE, NUMBER OF CYCLES: 4
     Dates: start: 20220603, end: 20220603

REACTIONS (2)
  - Lacrimal structure injury [Not Recovered/Not Resolved]
  - Dry eye [Not Recovered/Not Resolved]

NARRATIVE: CASE EVENT DATE: 20220401
